FAERS Safety Report 9283627 (Version 1)
Quarter: 2013Q2

REPORT INFORMATION
  Report Type: Spontaneous
  Country: GB (occurrence: GB)
  Receive Date: 20130510
  Receipt Date: 20130510
  Transmission Date: 20140414
  Serious: Yes (Hospitalization)
  Sender: FDA-Public Use
  Company Number: PHHY2013GB043790

PATIENT
  Age: 63 Year
  Sex: Male

DRUGS (2)
  1. 5-FLUOROURACIL [Suspect]
     Dosage: 4800 MG, UNK
     Dates: start: 20130411, end: 20130412
  2. SODIUM CHLORIDE SANDOZ [Suspect]
     Dosage: 230 MG, UNK
     Dates: start: 20130411, end: 20130412

REACTIONS (4)
  - Chest pain [Unknown]
  - Dyspnoea [Unknown]
  - Incorrect drug administration rate [Recovered/Resolved]
  - Device infusion issue [Unknown]
